FAERS Safety Report 26167333 (Version 1)
Quarter: 2025Q4

REPORT INFORMATION
  Report Type: Spontaneous
  Country: US (occurrence: US)
  Receive Date: 20251217
  Receipt Date: 20251217
  Transmission Date: 20260117
  Serious: No
  Sender: TEVA
  Company Number: US-TEVA-VS-3401312

PATIENT
  Age: 72 Year
  Sex: Female

DRUGS (2)
  1. AJOVY [Suspect]
     Active Substance: FREMANEZUMAB-VFRM
     Indication: Migraine
     Route: 058
     Dates: start: 20240417
  2. ATENOLOL [Concomitant]
     Active Substance: ATENOLOL
     Indication: Migraine
     Dosage: 20-50

REACTIONS (3)
  - Spondylitis [Unknown]
  - Neck pain [Unknown]
  - Product use issue [Unknown]

NARRATIVE: CASE EVENT DATE: 20240417
